FAERS Safety Report 4400680-0 (Version None)
Quarter: 2004Q3

REPORT INFORMATION
  Report Type: 
  Country: None (occurrence: None)
  Receive Date: 20040714
  Receipt Date: 20040628
  Transmission Date: 20050211
  Serious: Yes (Hospitalization)
  Sender: FDA-Public Use
  Company Number: 6009435

PATIENT
  Age: 42 Year
  Sex: Female

DRUGS (7)
  1. LEVOTHYROXINE SODIUM [Suspect]
     Dosage: 25 MG ORAL
     Route: 048
     Dates: start: 20030115
  2. SIMVASTATIN [Suspect]
     Indication: HYPERCHOLESTEROLAEMIA
     Dosage: 20 MG ORAL
     Route: 048
     Dates: start: 20030303, end: 20030307
  3. CLOZAPINE [Concomitant]
  4. LITHIUM CARBONATE [Concomitant]
  5. LOSEC (OMEPRAZOLE) [Concomitant]
  6. GLUCOBAY [Concomitant]
  7. AMARYL [Concomitant]

REACTIONS (5)
  - DELIRIUM [None]
  - DRUG INTERACTION [None]
  - SOMNOLENCE [None]
  - SPEECH DISORDER [None]
  - STUPOR [None]
